FAERS Safety Report 7612996-5 (Version None)
Quarter: 2011Q3

REPORT INFORMATION
  Report Type: 
  Country: None (occurrence: None)
  Receive Date: 20110713
  Receipt Date: 20110601
  Transmission Date: 20111222
  Serious: No
  Sender: FDA-Public Use
  Company Number: US-005491

PATIENT
  Sex: Male
  Weight: 92.9874 kg

DRUGS (7)
  1. LOSARTAN [Concomitant]
  2. DEXLANSOPRAZOLE [Concomitant]
  3. DEGARELIX 80 MG [Suspect]
     Indication: PROSTATE CANCER
     Dosage: (80 MG 1X/28 DAYS SUBCUTANEOUS),
     Route: 058
     Dates: start: 20110415
  4. DEGARELIX 80 MG [Suspect]
     Indication: PROSTATE CANCER
     Dosage: (80 MG 1X/28 DAYS SUBCUTANEOUS),
     Route: 058
     Dates: start: 20110401
  5. LIPITOR [Concomitant]
  6. ACCOMIN MULTIVITAMIN [Concomitant]
  7. COQ10 [Concomitant]

REACTIONS (3)
  - BIOPSY SKIN ABNORMAL [None]
  - RASH [None]
  - PRURITUS [None]
